FAERS Safety Report 8925023 (Version 1)
Quarter: 2012Q4

REPORT INFORMATION
  Report Type: 
  Country: CA (occurrence: CA)
  Receive Date: 20121126
  Receipt Date: 20121126
  Transmission Date: 20130627
  Serious: Yes (Hospitalization)
  Sender: FDA-Public Use
  Company Number: CA-ELI_LILLY_AND_COMPANY-CA201211005268

PATIENT
  Sex: Female

DRUGS (1)
  1. ADCIRCA [Suspect]
     Dosage: 20 mg, bid
     Route: 065
     Dates: start: 201210

REACTIONS (6)
  - Pancreatitis [Unknown]
  - Pain [Unknown]
  - Nausea [Unknown]
  - Vomiting [Recovered/Resolved]
  - Malaise [Unknown]
  - Headache [Not Recovered/Not Resolved]
